FAERS Safety Report 7167856-3 (Version None)
Quarter: 2010Q4

REPORT INFORMATION
  Report Type: 
  Country: None (occurrence: None)
  Receive Date: 20101216
  Receipt Date: 20101210
  Transmission Date: 20110411
  Serious: Yes (Other)
  Sender: FDA-Public Use
  Company Number: US-ABBOTT-10P-163-0690937-00

PATIENT
  Sex: Female
  Weight: 77.18 kg

DRUGS (13)
  1. HUMIRA [Suspect]
     Indication: RHEUMATOID ARTHRITIS
     Dates: start: 20100801, end: 20100901
  2. HUMIRA [Suspect]
     Dates: start: 20101101
  3. GLUCOTROL [Concomitant]
     Indication: DIABETES MELLITUS
  4. ACTOS [Concomitant]
     Indication: DIABETES MELLITUS
  5. GLUCOPHAGE [Concomitant]
     Indication: DIABETES MELLITUS
  6. PLAVIX [Concomitant]
     Indication: CARDIAC DISORDER
  7. CRESTOR [Concomitant]
     Indication: BLOOD CHOLESTEROL INCREASED
  8. TRICOR [Concomitant]
     Indication: BLOOD CHOLESTEROL INCREASED
  9. COZAAR [Concomitant]
     Indication: HYPERTENSION
  10. NAPROSYN [Concomitant]
     Indication: RHEUMATOID ARTHRITIS
  11. PREDNISONE [Concomitant]
     Indication: RHEUMATOID ARTHRITIS
  12. NEXIUM [Concomitant]
     Indication: GASTROOESOPHAGEAL REFLUX DISEASE
  13. METHOTREXATE [Concomitant]
     Indication: RHEUMATOID ARTHRITIS

REACTIONS (1)
  - HIATUS HERNIA [None]
